FAERS Safety Report 9506035 (Version 1)
Quarter: 2013Q1

REPORT INFORMATION
  Report Type: Spontaneous
  Country: US (occurrence: None)
  Receive Date: 20130206
  Receipt Date: 20130206
  Transmission Date: 20140127
  Serious: Yes (Other)
  Sender: FDA-Public Use
  Company Number: DAV-AE-MTX-12-02

PATIENT
  Age: 50 Year
  Sex: Male

DRUGS (7)
  1. METHOTREXATE [Suspect]
     Indication: RHEUMATOID ARTHRITIS
  2. HUMIRA (ADALIMUMAB) OPEN LABEL [Concomitant]
  3. OXAPROZIN [Concomitant]
  4. CYCLOBENZAPRINE [Concomitant]
  5. PANADEINE CO (CODEINE , PHOSPHATE AND PARACETAMOL) [Concomitant]
  6. NAPROXEN (NAPROXEN) [Concomitant]
  7. TADALAFIL (TADALAFIL) [Concomitant]

REACTIONS (1)
  - Infection [None]
